FAERS Safety Report 17614246 (Version 1)
Quarter: 2020Q2

REPORT INFORMATION
  Report Type: Spontaneous
  Country: CN (occurrence: CN)
  Receive Date: 20200402
  Receipt Date: 20200402
  Transmission Date: 20200713
  Serious: Yes (Hospitalization)
  Sender: FDA-Public Use
  Company Number: CN-DRREDDYS-GPV/CHN/20/0121212

PATIENT
  Age: 32 Year
  Sex: Female
  Weight: 52 kg

DRUGS (5)
  1. SODIUM VALPROATE [Suspect]
     Active Substance: VALPROATE SODIUM
     Indication: MANIA
     Route: 048
     Dates: start: 20200308, end: 20200316
  2. SODIUM VALPROATE [Suspect]
     Active Substance: VALPROATE SODIUM
     Route: 048
     Dates: start: 20200316, end: 20200317
  3. OLANZ [Suspect]
     Active Substance: OLANZAPINE
     Indication: MANIA
     Route: 048
     Dates: start: 20200306, end: 20200315
  4. OLANZ [Suspect]
     Active Substance: OLANZAPINE
     Route: 048
     Dates: start: 20200315, end: 20200316
  5. JIAPULE [Concomitant]
     Indication: MANIA
     Route: 048
     Dates: start: 20200313, end: 20200324

REACTIONS (2)
  - Altered state of consciousness [Recovering/Resolving]
  - Electroencephalogram abnormal [Recovering/Resolving]

NARRATIVE: CASE EVENT DATE: 20200315
